FAERS Safety Report 14036672 (Version 1)
Quarter: 2017Q4

REPORT INFORMATION
  Report Type: Spontaneous
  Country: JP (occurrence: JP)
  Receive Date: 20171003
  Receipt Date: 20171003
  Transmission Date: 20180321
  Serious: Yes (Hospitalization)
  Sender: FDA-Public Use
  Company Number: JP-009507513-1708JPN000988J

PATIENT
  Age: 87 Year
  Sex: Female

DRUGS (9)
  1. LUDIOMIL [Concomitant]
     Active Substance: MAPROTILINE HYDROCHLORIDE
     Dosage: UNK
     Route: 048
     Dates: end: 20170804
  2. STROMECTOL [Suspect]
     Active Substance: IVERMECTIN
     Dosage: 9 MG, QD
     Route: 048
     Dates: start: 20170724, end: 20170724
  3. STROMECTOL [Suspect]
     Active Substance: IVERMECTIN
     Dosage: 9 MG, QD
     Route: 048
     Dates: start: 20170731, end: 20170731
  4. STROMECTOL [Suspect]
     Active Substance: IVERMECTIN
     Dosage: 9 MG, QD
     Route: 048
     Dates: start: 20170717, end: 20170717
  5. SERMION [Concomitant]
     Active Substance: NICERGOLINE
     Dosage: UNK
     Route: 048
     Dates: end: 20170804
  6. MAGNESIUM OXIDE. [Concomitant]
     Active Substance: MAGNESIUM OXIDE
     Dosage: UNK
     Route: 048
     Dates: end: 20170804
  7. STROMECTOL [Suspect]
     Active Substance: IVERMECTIN
     Indication: ACARODERMATITIS
     Dosage: 9 MG, QD
     Route: 048
     Dates: start: 20170710, end: 20170710
  8. ENSURE [Concomitant]
     Active Substance: AMINO ACIDS\DEXTROSE\ELECTROLYTES NOS\SOYBEAN OIL\VITAMINS
     Dosage: UNK
     Route: 048
     Dates: end: 20170804
  9. ALLELOCK [Concomitant]
     Active Substance: OLOPATADINE HYDROCHLORIDE
     Indication: PRURITUS
     Dosage: UNK
     Route: 048
     Dates: end: 20170804

REACTIONS (4)
  - Dehydration [Recovering/Resolving]
  - Lymphadenopathy [Recovering/Resolving]
  - Inappropriate schedule of drug administration [Unknown]
  - Dysphagia [Unknown]

NARRATIVE: CASE EVENT DATE: 201708
